FAERS Safety Report 19609179 (Version 1)
Quarter: 2021Q3

REPORT INFORMATION
  Report Type: Spontaneous
  Country: US (occurrence: US)
  Receive Date: 20210725
  Receipt Date: 20210725
  Transmission Date: 20211014
  Serious: No
  Sender: FDA-Public Use
  Company Number: None

PATIENT
  Age: 29 Year
  Sex: Male
  Weight: 83 kg

DRUGS (9)
  1. ASCORBIC ACID. [Concomitant]
     Active Substance: ASCORBIC ACID
  2. CHOLECALCIFEROL [Concomitant]
     Active Substance: CHOLECALCIFEROL
  3. OLANZAPINE. [Concomitant]
     Active Substance: OLANZAPINE
  4. ATENOLOL. [Concomitant]
     Active Substance: ATENOLOL
  5. HALOPERIDOL DECANOATE. [Suspect]
     Active Substance: HALOPERIDOL DECANOATE
     Dosage: ?          OTHER FREQUENCY:EVERY 21 DAYS;?
     Route: 030
     Dates: start: 20201211
  6. TAMSULOSIN [Concomitant]
     Active Substance: TAMSULOSIN
  7. FLUOXETINE [Concomitant]
     Active Substance: FLUOXETINE HYDROCHLORIDE
  8. SIMETHICONE (DIMETHICONE) [Concomitant]
     Active Substance: DIMETHICONE
  9. MELATONIN [Concomitant]
     Active Substance: MELATONIN

REACTIONS (3)
  - Injection site pain [None]
  - Pyrexia [None]
  - Injection site warmth [None]

NARRATIVE: CASE EVENT DATE: 20210611
